FAERS Safety Report 5796744-X (Version None)
Quarter: 2008Q2

REPORT INFORMATION
  Report Type: 
  Country: None (occurrence: None)
  Receive Date: 20080627
  Receipt Date: 20080616
  Transmission Date: 20081010
  Serious: Yes (Death, Life-Threatening, Hospitalization, Other)
  Sender: FDA-Public Use
  Company Number: 49527

PATIENT
  Age: 61 Year
  Sex: Male

DRUGS (1)
  1. ETOMIDATE [Suspect]
     Indication: SUBARACHNOID HAEMORRHAGE

REACTIONS (8)
  - APNOEA [None]
  - ATRIAL FIBRILLATION [None]
  - BRAIN SCAN ABNORMAL [None]
  - CEREBRAL INFARCTION [None]
  - INCORRECT ROUTE OF DRUG ADMINISTRATION [None]
  - LOSS OF CONSCIOUSNESS [None]
  - RENAL FAILURE [None]
  - TOXIC EPIDERMAL NECROLYSIS [None]
